FAERS Safety Report 24008760 (Version 1)
Quarter: 2024Q2

REPORT INFORMATION
  Report Type: Spontaneous
  Country: US (occurrence: US)
  Receive Date: 20240625
  Receipt Date: 20240625
  Transmission Date: 20240716
  Serious: No
  Sender: FDA-Public Use
  Company Number: US-BRISTOL-MYERS SQUIBB COMPANY-2024-101016

PATIENT
  Age: 76 Year
  Sex: Male

DRUGS (1)
  1. OPDUALAG [Suspect]
     Active Substance: NIVOLUMAB\RELATLIMAB-RMBW
     Indication: Renal cell carcinoma
     Dosage: DOSE: 480 MG OVER 160 MG, FREQ: EVERY 4 WEEKS
     Route: 042

REACTIONS (2)
  - Illness [Unknown]
  - Off label use [Unknown]
